FAERS Safety Report 5946390-X (Version None)
Quarter: 2008Q4

REPORT INFORMATION
  Report Type: 
  Country: None (occurrence: None)
  Receive Date: 20081106
  Receipt Date: 20081009
  Transmission Date: 20090506
  Serious: Yes (Hospitalization)
  Sender: FDA-Public Use
  Company Number: 2008BM000192

PATIENT
  Age: 11 Year
  Sex: Male
  Weight: 22 kg

DRUGS (2)
  1. NAGLAZYME [Suspect]
     Indication: VIRAL INFECTION
     Dosage: 20 MG;QW;IV_DRP : 20 MG;QW;IV_DRP
     Route: 041
     Dates: start: 20071207, end: 20080920
  2. NAGLAZYME [Suspect]
     Indication: VIRAL INFECTION
     Dosage: 20 MG;QW;IV_DRP : 20 MG;QW;IV_DRP
     Route: 041
     Dates: start: 20081002

REACTIONS (1)
  - BRONCHIOLITIS [None]
